FAERS Safety Report 10450954 (Version 2)
Quarter: 2014Q4

REPORT INFORMATION
  Report Type: Spontaneous
  Country: IT (occurrence: FR)
  Receive Date: 20140912
  Receipt Date: 20141020
  Transmission Date: 20150528
  Serious: Yes (Other)
  Sender: FDA-Public Use
  Company Number: FR-FRI-1000070562

PATIENT
  Age: 72 Year
  Sex: Female

DRUGS (3)
  1. ALDACTAZINE [Suspect]
     Active Substance: ALTHIAZIDE\SPIRONOLACTONE
  2. PREVISCAN [Suspect]
     Active Substance: FLUINDIONE
     Route: 048
     Dates: start: 1993
  3. NEBIVOLOL [Suspect]
     Active Substance: NEBIVOLOL
     Indication: TACHYCARDIA
     Dosage: 5 MG
     Route: 048
     Dates: start: 201208, end: 201209

REACTIONS (3)
  - Sneezing [Not Recovered/Not Resolved]
  - Off label use [Recovered/Resolved]
  - Cough [Not Recovered/Not Resolved]

NARRATIVE: CASE EVENT DATE: 201208
